FAERS Safety Report 4423231-3 (Version None)
Quarter: 2004Q3

REPORT INFORMATION
  Report Type: 
  Country: None (occurrence: None)
  Receive Date: 20040803
  Receipt Date: 20040721
  Transmission Date: 20050211
  Serious: Yes (Other)
  Sender: FDA-Public Use
  Company Number: THYM-10249

PATIENT
  Age: 63 Year
  Sex: Female
  Weight: 71 kg

DRUGS (5)
  1. THYMOGLOBULIN [Suspect]
     Indication: GRAFT VERSUS HOST DISEASE
     Dosage: 2 MG/KG QD IV
     Route: 042
     Dates: start: 20040707, end: 20040710
  2. THYMOGLOBULIN [Suspect]
     Indication: PROPHYLAXIS
     Dosage: 2 MG/KG QD IV
     Route: 042
     Dates: start: 20040707, end: 20040710
  3. PREDNISOLONE [Concomitant]
  4. CYCLOSPORINE [Concomitant]
  5. FLUDARABINE [Concomitant]

REACTIONS (3)
  - ALANINE AMINOTRANSFERASE INCREASED [None]
  - ASPARTATE AMINOTRANSFERASE INCREASED [None]
  - GAMMA-GLUTAMYLTRANSFERASE INCREASED [None]
